FAERS Safety Report 10699899 (Version 1)
Quarter: 2015Q1

REPORT INFORMATION
  Report Type: Spontaneous
  Country: JP (occurrence: JP)
  Receive Date: 20150109
  Receipt Date: 20150109
  Transmission Date: 20150721
  Serious: Yes (Other)
  Sender: FDA-Public Use
  Company Number: PHHY2015JP001270

PATIENT

DRUGS (3)
  1. NEORAL [Suspect]
     Active Substance: CYCLOSPORINE
     Dosage: 80 MG, QD
     Route: 048
  2. NEORAL [Suspect]
     Active Substance: CYCLOSPORINE
     Indication: SYSTEMIC LUPUS ERYTHEMATOSUS
     Dosage: 100 MG, QD
     Route: 048
  3. PREDONINE [Concomitant]
     Active Substance: PREDNISOLONE\PREDNISOLONE ACETATE\PREDNISOLONE SODIUM SUCCINATE
     Indication: SYSTEMIC LUPUS ERYTHEMATOSUS
     Route: 048

REACTIONS (12)
  - Cardiac failure [Unknown]
  - Weight increased [Unknown]
  - Sepsis [Unknown]
  - Limb injury [Unknown]
  - Vomiting [Unknown]
  - Loss of consciousness [Unknown]
  - Renal failure [Unknown]
  - Oedema [Unknown]
  - Product use issue [Unknown]
  - Renal impairment [Unknown]
  - Cellulitis [Unknown]
  - Disseminated intravascular coagulation [Unknown]
